FAERS Safety Report 21555586 (Version 2)
Quarter: 2023Q1

REPORT INFORMATION
  Report Type: Spontaneous
  Country: CA (occurrence: CA)
  Receive Date: 20221104
  Receipt Date: 20230223
  Transmission Date: 20230418
  Serious: Yes (Other)
  Sender: FDA-Public Use
  Company Number: CA-TAKEDA-2022TUS079702

PATIENT
  Sex: Male
  Weight: 94 kg

DRUGS (5)
  1. ENTYVIO [Suspect]
     Active Substance: VEDOLIZUMAB
     Indication: Product used for unknown indication
     Dosage: UNK
     Route: 065
     Dates: start: 2021, end: 2022
  2. MESALAMINE [Suspect]
     Active Substance: MESALAMINE
     Indication: Product used for unknown indication
     Dosage: 500 MILLIGRAM
     Route: 065
  3. INFLECTRA [Suspect]
     Active Substance: INFLIXIMAB-DYYB
     Indication: Product used for unknown indication
     Dosage: UNK
     Route: 065
  4. HUMIRA [Suspect]
     Active Substance: ADALIMUMAB
     Indication: Product used for unknown indication
     Dosage: UNK
     Route: 058
     Dates: start: 2019, end: 2021
  5. PREDNISONE [Concomitant]
     Active Substance: PREDNISONE
     Indication: Colitis ulcerative
     Dosage: 40 MILLIGRAM
     Dates: start: 2018

REACTIONS (3)
  - Rectal haemorrhage [Not Recovered/Not Resolved]
  - Drug specific antibody present [Not Recovered/Not Resolved]
  - Drug ineffective [Not Recovered/Not Resolved]
